FAERS Safety Report 5699092-1 (Version None)
Quarter: 2008Q2

REPORT INFORMATION
  Report Type: 
  Country: None (occurrence: None)
  Receive Date: 20080329
  Receipt Date: 20080214
  Transmission Date: 20081010
  Serious: Yes (Other)
  Sender: FDA-Public Use
  Company Number: PHEH2008US02077

PATIENT
  Age: 42 Year
  Sex: Female

DRUGS (1)
  1. FOCALIN XR [Suspect]
     Dosage: 10 MG X 3 QD, ORAL
     Route: 048

REACTIONS (2)
  - ERYTHEMA MULTIFORME [None]
  - SKIN LESION [None]
